FAERS Safety Report 5707682-2 (Version None)
Quarter: 2008Q2

REPORT INFORMATION
  Report Type: 
  Country: None (occurrence: None)
  Receive Date: 20080415
  Receipt Date: 20080408
  Transmission Date: 20081010
  Serious: Yes (Hospitalization)
  Sender: FDA-Public Use
  Company Number: WAES 0711USA00326

PATIENT
  Age: 59 Year
  Sex: Female

DRUGS (8)
  1. JANUVIA [Suspect]
     Dosage: 100 MG/DAILY/PO; 100 MG/DAILY/PO
     Route: 048
     Dates: start: 20070525, end: 20070610
  2. JANUVIA [Suspect]
     Dosage: 100 MG/DAILY/PO; 100 MG/DAILY/PO
     Route: 048
     Dates: start: 20070611, end: 20070807
  3. JANUVIA [Suspect]
     Dosage: 100 MG/DAILY/PO; 100 MG/DAILY/PO
     Route: 048
     Dates: start: 20070809, end: 20071104
  4. JANUVIA [Suspect]
     Dosage: 100 MG/DAILY/PO; 100 MG/DAILY/PO
     Route: 048
     Dates: start: 20071101, end: 20071104
  5. HUMULIN R [Concomitant]
  6. HUMULIN R [Concomitant]
  7. LISINOPRIL [Concomitant]
  8. PRAVASTATIN SODIUM [Concomitant]

REACTIONS (14)
  - BACK PAIN [None]
  - BACTERIA URINE [None]
  - BALANOPOSTHITIS [None]
  - BLOOD GLUCOSE INCREASED [None]
  - HYPERSENSITIVITY [None]
  - LEUKOCYTOCLASTIC VASCULITIS [None]
  - PENILE ABSCESS [None]
  - PENILE INFECTION [None]
  - PENILE NECROSIS [None]
  - SCROTAL SWELLING [None]
  - STAPHYLOCOCCAL INFECTION [None]
  - TINEA INFECTION [None]
  - URTICARIA [None]
  - WOUND DEHISCENCE [None]
